FAERS Safety Report 16661701 (Version 2)
Quarter: 2019Q3

REPORT INFORMATION
  Report Type: Spontaneous
  Country: IT (occurrence: IT)
  Receive Date: 20190802
  Receipt Date: 20190903
  Transmission Date: 20191004
  Serious: Yes (Other)
  Sender: FDA-Public Use
  Company Number: IT-PFIZER INC-2019325963

PATIENT
  Sex: Female

DRUGS (3)
  1. VARGATEF [Suspect]
     Active Substance: NINTEDANIB
     Dosage: 300 MG, 1X/DAY
     Route: 065
     Dates: start: 20171116, end: 20180521
  2. VARGATEF [Suspect]
     Active Substance: NINTEDANIB
     Indication: CHEMOTHERAPY
     Dosage: 400 MG, 1X/DAY
     Route: 048
     Dates: start: 20170822, end: 20171114
  3. DOCETAXEL. [Suspect]
     Active Substance: DOCETAXEL
     Indication: CHEMOTHERAPY
     Dosage: 75 MG/MQ  EVERY 3 WEEKS (G1Q21 )
     Route: 065
     Dates: start: 20170822, end: 20171114

REACTIONS (2)
  - Toxic neuropathy [Not Recovered/Not Resolved]
  - Gastrointestinal toxicity [Recovered/Resolved]
